FAERS Safety Report 23968358 (Version 2)
Quarter: 2024Q3

REPORT INFORMATION
  Report Type: Spontaneous
  Country: JP (occurrence: JP)
  Receive Date: 20240612
  Receipt Date: 20240702
  Transmission Date: 20241016
  Serious: No
  Sender: ARGENX BVBA
  Company Number: JP-ARGENX-2024-ARGX-JP004121AA

PATIENT

DRUGS (3)
  1. EFGARTIGIMOD ALFA [Suspect]
     Active Substance: EFGARTIGIMOD ALFA
     Indication: Myasthenia gravis
     Dosage: 1100 MG
     Route: 042
     Dates: start: 20230927
  2. EFGARTIGIMOD ALFA [Suspect]
     Active Substance: EFGARTIGIMOD ALFA
     Dosage: 1100 MG
     Route: 042
     Dates: end: 20240516
  3. PREDNISOLONE [Concomitant]
     Active Substance: PREDNISOLONE
     Dosage: 20 MG
     Route: 065

REACTIONS (1)
  - Abdominal pain upper [Recovered/Resolved]

NARRATIVE: CASE EVENT DATE: 20240516
